FAERS Safety Report 8899584 (Version 1)
Quarter: 2012Q4

REPORT INFORMATION
  Report Type: 
  Country: US (occurrence: US)
  Receive Date: 20121109
  Receipt Date: 20121109
  Transmission Date: 20130627
  Serious: Yes (Other)
  Sender: FDA-Public Use
  Company Number: US-PFIZER INC-2012169863

PATIENT
  Age: 73 Year
  Sex: Male
  Weight: 107 kg

DRUGS (4)
  1. CELEBREX [Suspect]
     Indication: ARTHRITIS
     Dosage: 200 mg, 2x/day
     Route: 048
     Dates: start: 201207
  2. NEURONTIN [Suspect]
     Indication: NEUROPATHIC PAIN
     Dosage: 300 mg, 3x/day
     Route: 048
  3. MIRAPEX ER [Concomitant]
     Indication: PARKINSON^S DISEASE
     Dosage: UNK
  4. LEVODOPA-CARBIDOPA ER [Concomitant]
     Indication: PARKINSON^S DISEASE
     Dosage: UNK

REACTIONS (3)
  - Renal disorder [Not Recovered/Not Resolved]
  - Arthritis [Not Recovered/Not Resolved]
  - Drug ineffective [Unknown]
